FAERS Safety Report 12675002 (Version 1)
Quarter: 2016Q3

REPORT INFORMATION
  Report Type: Report from Study
  Country: US (occurrence: US)
  Receive Date: 20160823
  Receipt Date: 20160823
  Transmission Date: 20161109
  Serious: Yes (Other)
  Sender: FDA-Public Use
  Company Number: US-CIPLA LTD.-2016US17490

PATIENT

DRUGS (2)
  1. TRIENTINE [Suspect]
     Active Substance: TRIENTINE
     Indication: BLADDER CANCER
     Dosage: 500 MG, QID TWO TIMES WITH MEALS PLUS TWO TIMES WITHOUT MEALS
     Route: 048
  2. CARBOPLATIN. [Suspect]
     Active Substance: CARBOPLATIN
     Indication: BLADDER CANCER
     Dosage: UNK INFUSION, OVER 2 HOURS, ON DAY 1 EVERY 28 DAYS
     Route: 042

REACTIONS (1)
  - Neoplasm progression [Unknown]
